FAERS Safety Report 24912000 (Version 1)
Quarter: 2025Q1

REPORT INFORMATION
  Report Type: Spontaneous
  Country: US (occurrence: US)
  Receive Date: 20250131
  Receipt Date: 20250131
  Transmission Date: 20250409
  Serious: No
  Sender: SANOFI AVENTIS
  Company Number: US-SA-2025SA030472

PATIENT
  Age: 25 Year
  Sex: Female
  Weight: 59.09 kg

DRUGS (1)
  1. DUPIXENT [Suspect]
     Active Substance: DUPILUMAB
     Indication: Dermatitis atopic
     Route: 058
     Dates: start: 20250117, end: 20250117

REACTIONS (5)
  - Eczema [Unknown]
  - Urticaria [Unknown]
  - Erythema [Unknown]
  - Skin swelling [Unknown]
  - Skin irritation [Unknown]

NARRATIVE: CASE EVENT DATE: 20250120
